FAERS Safety Report 13700629 (Version 1)
Quarter: 2017Q2

REPORT INFORMATION
  Report Type: Spontaneous
  Country: IT (occurrence: IT)
  Receive Date: 20170629
  Receipt Date: 20170629
  Transmission Date: 20170830
  Serious: Yes (Other)
  Sender: FDA-Public Use
  Company Number: IT-ASTRAZENECA-2017SE65928

PATIENT
  Age: 43 Year
  Sex: Female

DRUGS (3)
  1. OLAPARIB [Suspect]
     Active Substance: OLAPARIB
     Route: 048
     Dates: start: 20150914
  2. OLAPARIB [Suspect]
     Active Substance: OLAPARIB
     Route: 048
  3. ATORVASTATIN + EZETIMIBE [Concomitant]

REACTIONS (4)
  - Vomiting [Unknown]
  - Presyncope [Unknown]
  - Muscle spasms [Unknown]
  - Asthenia [Unknown]

NARRATIVE: CASE EVENT DATE: 201510
